FAERS Safety Report 21326849 (Version 8)
Quarter: 2024Q2

REPORT INFORMATION
  Report Type: Spontaneous
  Country: ES (occurrence: ES)
  Receive Date: 20220913
  Receipt Date: 20240607
  Transmission Date: 20240716
  Serious: Yes (Death, Other)
  Sender: FDA-Public Use
  Company Number: None

PATIENT
  Age: 39 Year
  Sex: Male

DRUGS (8)
  1. DEXAMETHASONE [Suspect]
     Active Substance: DEXAMETHASONE
     Indication: COVID-19
     Dosage: 6 MG, Q24H (4 MG INJECTABLE 1 ML VIALFREQUENCY TEXT: EVERY 24 HOURS)
     Route: 042
     Dates: start: 20220818, end: 20220819
  2. LINEZOLID [Suspect]
     Active Substance: LINEZOLID
     Indication: Pneumonia
     Dosage: 600MG EVERY 12
     Route: 042
     Dates: start: 20220818, end: 20220819
  3. MEROPENEM [Suspect]
     Active Substance: MEROPENEM
     Indication: Pneumonia
     Dosage: EVERY 8H, MEROPENEM 1.000 MG INJECTION
     Route: 042
     Dates: start: 20220818
  4. ENOXAPARIN SODIUM [Suspect]
     Active Substance: ENOXAPARIN SODIUM
     Indication: Prophylaxis
     Dosage: ENOXAPARIN SODIUM 40 MG (4,000 IU) INJECTION 0.4 ML, 1 EVERY 24H
     Route: 058
     Dates: start: 20220818
  5. ACETAMINOPHEN [Suspect]
     Active Substance: ACETAMINOPHEN
     Indication: Pyrexia
     Route: 042
     Dates: start: 20220818, end: 20220819
  6. TECLISTAMAB [Suspect]
     Active Substance: TECLISTAMAB
     Indication: Plasma cell myeloma refractory
     Dosage: TECLISTAMAB (30933A)
     Route: 065
     Dates: start: 20220624, end: 20220812
  7. TECLISTAMAB [Suspect]
     Active Substance: TECLISTAMAB
     Dosage: TECLISTAMAB (30933A)
     Route: 065
     Dates: start: 20220818, end: 20220818
  8. TOCILIZUMAB [Suspect]
     Active Substance: TOCILIZUMAB
     Indication: COVID-19
     Dosage: TOTAL, 600MG SINGLE DOSE, TOCILIZUMAB (8289A)
     Route: 042
     Dates: start: 20220818, end: 20220818

REACTIONS (2)
  - Hepatitis fulminant [Fatal]
  - Hepatitis acute [Fatal]

NARRATIVE: CASE EVENT DATE: 20220819
